FAERS Safety Report 16599514 (Version 2)
Quarter: 2020Q4

REPORT INFORMATION
  Report Type: Spontaneous
  Country: US (occurrence: US)
  Receive Date: 20190719
  Receipt Date: 20201215
  Transmission Date: 20210113
  Serious: No
  Sender: FDA-Public Use
  Company Number: US-SHIRE-US201923122

PATIENT
  Age: 74 Year
  Sex: Female

DRUGS (5)
  1. FIRAZYR [Suspect]
     Active Substance: ICATIBANT ACETATE
     Indication: PRODUCT USED FOR UNKNOWN INDICATION
     Dosage: UNK, AS REQ^D 30 MG/3 ML
     Route: 058
     Dates: start: 20190304
  2. TAKHZYRO [Suspect]
     Active Substance: LANADELUMAB-FLYO
     Indication: PRODUCT USED FOR UNKNOWN INDICATION
     Dosage: 300 MILLIGRAM, 1X/2WKS
     Route: 058
     Dates: start: 20190603
  3. FIRAZYR [Suspect]
     Active Substance: ICATIBANT ACETATE
     Indication: PRODUCT USED FOR UNKNOWN INDICATION
     Dosage: UNK, AS REQ^D 30 MG/3 ML
     Route: 058
     Dates: start: 20190304
  4. FIRAZYR [Suspect]
     Active Substance: ICATIBANT ACETATE
     Dosage: 300MG/3ML, PRN
     Route: 058
     Dates: start: 20120919
  5. FIRAZYR [Suspect]
     Active Substance: ICATIBANT ACETATE
     Dosage: 300MG/3ML, PRN
     Route: 058
     Dates: start: 20120919

REACTIONS (3)
  - Joint injury [Recovering/Resolving]
  - Hereditary angioedema [Recovered/Resolved]
  - Fall [Recovering/Resolving]

NARRATIVE: CASE EVENT DATE: 20201122
